FAERS Safety Report 8309237-2 (Version None)
Quarter: 2012Q2

REPORT INFORMATION
  Report Type: 
  Country: None (occurrence: None)
  Receive Date: 20120424
  Receipt Date: 20120419
  Transmission Date: 20120825
  Serious: Yes (Death, Life-Threatening)
  Sender: FDA-Public Use
  Company Number: SG-MERCK-1204USA01367

PATIENT

DRUGS (3)
  1. VORICONAZOLE [Concomitant]
     Route: 065
  2. CANCIDAS [Suspect]
     Indication: SYSTEMIC CANDIDA
     Route: 042
     Dates: start: 20120301
  3. VANCOMYCIN [Concomitant]
     Route: 065

REACTIONS (3)
  - BLISTER [None]
  - DRUG INEFFECTIVE [None]
  - SYSTEMIC CANDIDA [None]
